FAERS Safety Report 6965969-X (Version None)
Quarter: 2010Q3

REPORT INFORMATION
  Report Type: 
  Country: None (occurrence: None)
  Receive Date: 20100903
  Receipt Date: 20100825
  Transmission Date: 20110219
  Serious: Yes (Other)
  Sender: FDA-Public Use
  Company Number: US-PFIZER INC-2010107765

PATIENT
  Sex: Female

DRUGS (12)
  1. GLUCOTROL XL [Suspect]
     Dosage: 10 MG, 2X/DAY
     Dates: start: 19960101
  2. GLIPIZIDE [Suspect]
     Indication: TYPE 2 DIABETES MELLITUS
     Dosage: 10 MG, 2X/DAY
  3. ESTRADIOL [Suspect]
     Dosage: UNK
  4. GLIPIZIDE [Suspect]
     Indication: DIABETES MELLITUS
     Dosage: 10 MG, 2X/DAY
  5. CHROMIUM PICOLINATE [Suspect]
  6. CLONIDINE [Suspect]
     Indication: BLOOD PRESSURE
     Dosage: 0.1 MG, UNK
  7. COLCHICINE [Suspect]
  8. ACTOS [Suspect]
     Indication: DIABETES MELLITUS
  9. AVANDIA [Suspect]
     Indication: DIABETES MELLITUS
  10. REZULIN [Suspect]
     Indication: DIABETES MELLITUS
  11. ASCORBIC ACID [Concomitant]
  12. GLUCOPHAGE [Concomitant]
     Dosage: 1000 MG, 2X/DAY

REACTIONS (10)
  - BLOOD GLUCOSE INCREASED [None]
  - BLOOD PRESSURE INCREASED [None]
  - DIARRHOEA [None]
  - DRUG DISPENSING ERROR [None]
  - DRUG INEFFECTIVE [None]
  - FATIGUE [None]
  - GLYCOSYLATED HAEMOGLOBIN INCREASED [None]
  - NEUROPATHY PERIPHERAL [None]
  - OEDEMA [None]
  - TREMOR [None]
